FAERS Safety Report 13529780 (Version 1)
Quarter: 2017Q2

REPORT INFORMATION
  Report Type: Spontaneous
  Country: US (occurrence: None)
  Receive Date: 20170508
  Receipt Date: 20170508
  Transmission Date: 20170830
  Serious: No
  Sender: FDA-Public Use
  Company Number: 1725006-2017-00001

PATIENT
  Sex: Male

DRUGS (1)
  1. BEEGENTLE TOPICAL ANESTHETIC [Suspect]
     Active Substance: BENZOCAINE
     Indication: HYPOAESTHESIA ORAL
     Route: 004
     Dates: start: 20170331

REACTIONS (1)
  - Cheilitis [None]

NARRATIVE: CASE EVENT DATE: 20170331
